FAERS Safety Report 7606159-7 (Version None)
Quarter: 2011Q3

REPORT INFORMATION
  Report Type: 
  Country: None (occurrence: None)
  Receive Date: 20110713
  Receipt Date: 20110707
  Transmission Date: 20111222
  Serious: Yes (Other)
  Sender: FDA-Public Use
  Company Number: US-BAYER-2011-043772

PATIENT
  Age: 23 Year
  Sex: Female
  Weight: 58.05 kg

DRUGS (1)
  1. MIRENA [Suspect]
     Dosage: UNK
     Route: 015
     Dates: end: 20110422

REACTIONS (3)
  - DISCOMFORT [None]
  - DEVICE DISLOCATION [None]
  - UTERINE PERFORATION [None]
